FAERS Safety Report 10518239 (Version 1)
Quarter: 2014Q4

REPORT INFORMATION
  Report Type: Spontaneous
  Country: JP (occurrence: JP)
  Receive Date: 20141015
  Receipt Date: 20141015
  Transmission Date: 20150528
  Serious: Yes (Hospitalization)
  Sender: FDA-Public Use
  Company Number: JP-PFIZER INC-2014277678

PATIENT
  Age: 72 Year
  Sex: Male
  Weight: 49.1 kg

DRUGS (5)
  1. TAKEPRON [Concomitant]
     Active Substance: LANSOPRAZOLE
     Dosage: 15 MG, DAILY
     Dates: start: 20140509
  2. LYRICA [Suspect]
     Active Substance: PREGABALIN
     Indication: PAIN
     Dosage: 25 MG, 1X/DAY
     Route: 048
     Dates: start: 20140802, end: 20140917
  3. ODYNE [Suspect]
     Active Substance: FLUTAMIDE
     Indication: PROSTATE CANCER
     Dosage: 125 MG, 2X/DAY
     Route: 048
     Dates: start: 20140704, end: 20140917
  4. OXYCONTIN [Concomitant]
     Active Substance: OXYCODONE HYDROCHLORIDE
     Dosage: 40 MG, DAILY
     Dates: start: 20140720
  5. URSO [Concomitant]
     Active Substance: URSODIOL
     Dosage: 200 MG, DAILY
     Dates: start: 20140704

REACTIONS (2)
  - Decreased appetite [Unknown]
  - Hepatic function abnormal [Recovering/Resolving]

NARRATIVE: CASE EVENT DATE: 20140820
